FAERS Safety Report 9862022 (Version 1)
Quarter: 2014Q1

REPORT INFORMATION
  Report Type: Spontaneous
  Country: US (occurrence: US)
  Receive Date: 20140203
  Receipt Date: 20140203
  Transmission Date: 20141002
  Serious: Yes (Other)
  Sender: FDA-Public Use
  Company Number: US-AMGEN-USASP2014006508

PATIENT
  Age: 53 Year
  Sex: Female
  Weight: 65.76 kg

DRUGS (8)
  1. ENBREL [Suspect]
     Indication: PRODUCT USED FOR UNKNOWN INDICATION
     Dosage: UNK
     Route: 065
     Dates: start: 201301, end: 201303
  2. HUMIRA [Suspect]
     Indication: PSORIATIC ARTHROPATHY
     Dosage: 40 MG, UNK
     Route: 058
     Dates: start: 200910, end: 201308
  3. HUMIRA [Suspect]
     Indication: PSORIASIS
  4. HYDROCODONE [Concomitant]
     Indication: PAIN
     Dosage: UNK
  5. TYLENOL                            /00020001/ [Concomitant]
     Indication: PAIN
     Dosage: UNK
  6. FENTANYL [Concomitant]
     Indication: PAIN
     Dosage: UNK
  7. LISINOPRIL [Concomitant]
     Indication: HYPERTENSION
     Dosage: UNK
  8. PROZAC [Concomitant]
     Indication: DEPRESSION
     Dosage: UNK

REACTIONS (7)
  - Urinary retention [Recovered/Resolved]
  - Hypertonic bladder [Recovered/Resolved]
  - Psoriatic arthropathy [Unknown]
  - Psoriasis [Unknown]
  - Injection site swelling [Unknown]
  - Injection site pruritus [Unknown]
  - Injection site pain [Unknown]
